FAERS Safety Report 13404774 (Version 2)
Quarter: 2017Q2

REPORT INFORMATION
  Report Type: Report from Study
  Country: US (occurrence: US)
  Receive Date: 20170405
  Receipt Date: 20170523
  Transmission Date: 20170830
  Serious: Yes (Hospitalization, Other)
  Sender: FDA-Public Use
  Company Number: US-GILEAD-2017-0265581

PATIENT
  Age: 71 Year
  Sex: Female
  Weight: 50.79 kg

DRUGS (34)
  1. SILDENAFIL. [Concomitant]
     Active Substance: SILDENAFIL
     Dosage: UNK
  2. DIPHENHYDRAMINE HCL [Concomitant]
     Active Substance: DIPHENHYDRAMINE HYDROCHLORIDE
  3. ALPRAZOLAM. [Concomitant]
     Active Substance: ALPRAZOLAM
  4. MENTHOL. [Concomitant]
     Active Substance: MENTHOL
  5. BISACODYL. [Concomitant]
     Active Substance: BISACODYL
  6. OXYCODONE [Concomitant]
     Active Substance: OXYCODONE
  7. PROMETHAZINE [Concomitant]
     Active Substance: PROMETHAZINE\PROMETHAZINE HYDROCHLORIDE
  8. AMBRISENTAN [Suspect]
     Active Substance: AMBRISENTAN
     Indication: SCLERODERMA
  9. DOCUSATE SODIUM. [Concomitant]
     Active Substance: DOCUSATE SODIUM
  10. LACTOBACILLUS ACIDOPHILUS [Concomitant]
     Active Substance: LACTOBACILLUS ACIDOPHILUS
  11. PANTOPRAZOLE [Concomitant]
     Active Substance: PANTOPRAZOLE
  12. METOCLOPRAMIDE. [Concomitant]
     Active Substance: METOCLOPRAMIDE
  13. AMITRIPTYLINE [Concomitant]
     Active Substance: AMITRIPTYLINE
  14. CELECOXIB. [Concomitant]
     Active Substance: CELECOXIB
  15. LEVOTHYROXINE. [Concomitant]
     Active Substance: LEVOTHYROXINE
  16. TRAMADOL. [Concomitant]
     Active Substance: TRAMADOL
  17. ZOLPIDEM [Concomitant]
     Active Substance: ZOLPIDEM\ZOLPIDEM TARTRATE
  18. CALCIUM CARBONATE. [Concomitant]
     Active Substance: CALCIUM CARBONATE
  19. DIPHENOXYLATE HCL + ATROPINE SULFATE [Concomitant]
     Active Substance: ATROPINE SULFATE\DIPHENOXYLATE HYDROCHLORIDE
  20. ACETAMINOPHEN. [Concomitant]
     Active Substance: ACETAMINOPHEN
  21. FUROSEMIDE. [Concomitant]
     Active Substance: FUROSEMIDE
  22. SUCRALFATE. [Concomitant]
     Active Substance: SUCRALFATE
  23. TOLTERODINE [Concomitant]
     Active Substance: TOLTERODINE
  24. ASPIRIN EC [Concomitant]
     Active Substance: ASPIRIN
  25. CARVEDILOL. [Concomitant]
     Active Substance: CARVEDILOL
  26. KETOROLAC [Concomitant]
     Active Substance: KETOROLAC\KETOROLAC TROMETHAMINE
  27. MISOPROSTOL. [Concomitant]
     Active Substance: MISOPROSTOL
  28. SIMVASTATIN. [Concomitant]
     Active Substance: SIMVASTATIN
  29. PARENTERAL [Concomitant]
  30. BENZOCAINE. [Concomitant]
     Active Substance: BENZOCAINE
  31. ONDANSETRON HCL [Concomitant]
     Active Substance: ONDANSETRON HYDROCHLORIDE
  32. AMBRISENTAN [Suspect]
     Active Substance: AMBRISENTAN
     Indication: PULMONARY HYPERTENSION
     Dosage: 10 MG, QD
     Route: 048
     Dates: start: 20160809
  33. ESCITALOPRAM [Concomitant]
     Active Substance: ESCITALOPRAM OXALATE
  34. MORPHINE [Concomitant]
     Active Substance: MORPHINE

REACTIONS (2)
  - Pain [Recovered/Resolved]
  - Osteoarthritis [Recovered/Resolved]

NARRATIVE: CASE EVENT DATE: 20161129
